FAERS Safety Report 6465482-2 (Version None)
Quarter: 2009Q4

REPORT INFORMATION
  Report Type: 
  Country: None (occurrence: None)
  Receive Date: 20091124
  Receipt Date: 20091118
  Transmission Date: 20100525
  Serious: Yes (Congenital Anomaly)
  Sender: FDA-Public Use
  Company Number: 2009SP037110

PATIENT
  Age: 1 Day
  Sex: Female
  Weight: 3.27 kg

DRUGS (3)
  1. NUVARING [Suspect]
     Indication: DRUG USE FOR UNKNOWN INDICATION
     Dosage: ; TRPL
     Route: 064
     Dates: start: 20090121, end: 20090215
  2. LEVOTHYROXINE SODIUM [Suspect]
     Indication: DRUG EXPOSURE DURING PREGNANCY
     Dosage: ; TRPL
     Route: 064
     Dates: start: 20080701
  3. OXAZEPAM [Concomitant]

REACTIONS (3)
  - CARDIAC MURMUR [None]
  - MATERNAL DRUGS AFFECTING FOETUS [None]
  - VENTRICULAR SEPTAL DEFECT [None]
